FAERS Safety Report 7966050-3 (Version None)
Quarter: 2011Q4

REPORT INFORMATION
  Report Type: 
  Country: None (occurrence: None)
  Receive Date: 20111208
  Receipt Date: 20111205
  Transmission Date: 20120403
  Serious: Yes (Other)
  Sender: FDA-Public Use
  Company Number: US-PFIZER INC-2011296178

PATIENT
  Age: 80 Year
  Sex: Female
  Weight: 74.83 kg

DRUGS (6)
  1. TOVIAZ [Suspect]
     Indication: URINARY INCONTINENCE
     Dosage: 8 MG, 1X/DAY
     Route: 048
     Dates: start: 20111204, end: 20111204
  2. SIMVASTATIN [Concomitant]
     Indication: BLOOD CHOLESTEROL INCREASED
     Dosage: 40 MG, UNK
  3. ACETYLSALICYLIC ACID [Concomitant]
     Dosage: UNK
  4. BETAXOLOL [Concomitant]
     Indication: HYPERTENSION
     Dosage: 20 MG, UNK
  5. ISOSORBIDE [Concomitant]
     Dosage: 40 MG, 3X/DAY
  6. PANTOPRAZOLE [Concomitant]
     Indication: GASTROOESOPHAGEAL REFLUX DISEASE
     Dosage: UNK

REACTIONS (3)
  - DRY MOUTH [None]
  - URINARY RETENTION [None]
  - RENAL PAIN [None]
